FAERS Safety Report 19170228 (Version 1)
Quarter: 2021Q2

REPORT INFORMATION
  Report Type: Spontaneous
  Country: US (occurrence: US)
  Receive Date: 20210422
  Receipt Date: 20210422
  Transmission Date: 20210717
  Serious: No
  Sender: FDA-Public Use
  Company Number: US-MYLANLABS-2021M1022336

PATIENT
  Sex: Male
  Weight: 77 kg

DRUGS (2)
  1. WIXELA INHUB [Suspect]
     Active Substance: FLUTICASONE PROPIONATE\SALMETEROL XINAFOATE
     Indication: ASTHMA
     Dosage: 250/50 MCG ONCE DAILY IN THE MORNING
     Route: 055
  2. FLONASE                            /00908302/ [Concomitant]
     Active Substance: MOMETASONE FUROATE
     Dosage: AS?NEEDED BASIS, MAYBE ONLY USING IT ONCE OR TWICE A MONTHPRN

REACTIONS (1)
  - Intentional product use issue [Not Recovered/Not Resolved]
